FAERS Safety Report 16820570 (Version 1)
Quarter: 2019Q3

REPORT INFORMATION
  Report Type: Report from Study
  Country: AU (occurrence: AU)
  Receive Date: 20190918
  Receipt Date: 20190918
  Transmission Date: 20191005
  Serious: Yes (Other)
  Sender: FDA-Public Use
  Company Number: AU-BRISTOL-MYERS SQUIBB COMPANY-BMS-2019-089417

PATIENT
  Age: 75 Year
  Sex: Male

DRUGS (11)
  1. THYROXINE [Concomitant]
     Active Substance: LEVOTHYROXINE
     Indication: HYPOTHYROIDISM
     Dosage: 50 MICROGRAM, QD
     Route: 048
     Dates: start: 20181212
  2. ZOPICLONE [Concomitant]
     Active Substance: ZOPICLONE
     Indication: INSOMNIA
     Dosage: 7.5 MILLIGRAM, PRN
     Route: 048
     Dates: start: 20181116
  3. NIVOLUMAB [Suspect]
     Active Substance: NIVOLUMAB
     Indication: RENAL CELL CARCINOMA
     Dosage: UNK
     Route: 065
     Dates: start: 20180821, end: 20190816
  4. FOLATE [Concomitant]
     Active Substance: FOLATE SODIUM
     Indication: AORTIC ANEURYSM
     Dosage: 5 MILLIGRAM, QD
     Route: 048
     Dates: start: 2007
  5. SYMBICORT [Concomitant]
     Active Substance: BUDESONIDE\FORMOTEROL FUMARATE DIHYDRATE
     Indication: ASTHMA
     Dosage: UNK, PRN
     Dates: start: 2011
  6. TARGIN [Concomitant]
     Active Substance: NALOXONE HYDROCHLORIDE\OXYCODONE HYDROCHLORIDE
     Indication: OSTEOARTHRITIS
     Dosage: 5 MILLIGRAM, BID
     Route: 048
     Dates: start: 2016
  7. LIPITOR [Concomitant]
     Active Substance: ATORVASTATIN CALCIUM
     Indication: HYPERCHOLESTEROLAEMIA
     Dosage: 20 MILLIGRAM, QD
     Route: 048
     Dates: start: 2013
  8. EFFEXOR [Concomitant]
     Active Substance: VENLAFAXINE HYDROCHLORIDE
     Indication: DEPRESSION
     Dosage: 175 MILLIGRAM, QD
     Route: 048
     Dates: start: 2011
  9. CHLORSIG [Concomitant]
     Active Substance: CHLORAMPHENICOL
     Indication: DRY EYE
     Dosage: 1 DOSAGE FORM, BID
     Dates: start: 20181214
  10. OXYCODONE [Concomitant]
     Active Substance: OXYCODONE
     Indication: OSTEOARTHRITIS
     Dosage: 5 MILLIGRAM, PRN
     Route: 048
     Dates: start: 20180814
  11. ASPIRIN [ACETYLSALICYLIC ACID] [Concomitant]
     Active Substance: ASPIRIN
     Indication: AORTIC ANEURYSM
     Dosage: 100 MILLIGRAM, QD
     Route: 048
     Dates: start: 2007

REACTIONS (1)
  - Ejection fraction decreased [Unknown]

NARRATIVE: CASE EVENT DATE: 20190903
